FAERS Safety Report 12282938 (Version 2)
Quarter: 2016Q2

REPORT INFORMATION
  Report Type: Spontaneous
  Country: US (occurrence: US)
  Receive Date: 20160419
  Receipt Date: 20160509
  Transmission Date: 20160815
  Serious: No
  Sender: FDA-Public Use
  Company Number: US-PFIZER INC-2016211448

PATIENT
  Age: 50 Year
  Sex: Female
  Weight: 67.13 kg

DRUGS (7)
  1. CELECOXIB. [Concomitant]
     Active Substance: CELECOXIB
     Indication: PAIN
     Dosage: 200 MG ONE A DAY
     Dates: start: 2015
  2. PRISTIQ EXTENDED-RELEASE [Suspect]
     Active Substance: DESVENLAFAXINE SUCCINATE
     Dosage: 50 MG, IN THE MORNING ONCE A DAY
  3. AMITRIPTYLINE [Concomitant]
     Active Substance: AMITRIPTYLINE
     Indication: PAIN
     Dosage: 40 MG, UNK
     Dates: start: 2015
  4. PRISTIQ EXTENDED-RELEASE [Suspect]
     Active Substance: DESVENLAFAXINE SUCCINATE
     Indication: PAIN
     Dosage: 25 MG, UNK
     Dates: start: 20160405
  5. PERCOCET [Concomitant]
     Active Substance: ACETAMINOPHEN\OXYCODONE HYDROCHLORIDE
     Indication: PAIN
     Dosage: OXYCODONE HYDROCHLORIDE 325 MG, PARACETAMOL 5 , TWICE A DAY
  6. CYCLAFEM 7/7/7 [Concomitant]
     Active Substance: ETHINYL ESTRADIOL\NORETHINDRONE
     Indication: CONTRACEPTION
     Dosage: ETHINYLESTRADIOL 0.35, NORETHISTERONE 0.5 MG
  7. VITAMIN D /00107901/ [Concomitant]
     Active Substance: ERGOCALCIFEROL
     Indication: VITAMIN D DEFICIENCY
     Dosage: 50000 MG ONCE A WEEK
     Dates: start: 2015

REACTIONS (4)
  - Drug ineffective for unapproved indication [Not Recovered/Not Resolved]
  - Energy increased [Unknown]
  - Therapeutic response unexpected [Unknown]
  - Arthritis [Unknown]

NARRATIVE: CASE EVENT DATE: 20160405
